FAERS Safety Report 24589785 (Version 1)
Quarter: 2024Q4

REPORT INFORMATION
  Report Type: Spontaneous
  Country: US (occurrence: US)
  Receive Date: 20241107
  Receipt Date: 20241107
  Transmission Date: 20250115
  Serious: No
  Sender: ASCENT PHARMACEUTICALS INC
  Company Number: US-ASCENT-2024ASSPO00038

PATIENT
  Age: 67 Year
  Sex: Female

DRUGS (1)
  1. BENZONATATE [Suspect]
     Active Substance: BENZONATATE
     Indication: Product used for unknown indication
     Route: 065

REACTIONS (2)
  - Mouth swelling [Unknown]
  - Swelling [Unknown]
